FAERS Safety Report 24602802 (Version 1)
Quarter: 2024Q4

REPORT INFORMATION
  Report Type: Spontaneous
  Country: US (occurrence: US)
  Receive Date: 20241111
  Receipt Date: 20241111
  Transmission Date: 20250115
  Serious: No
  Sender: BAYER HEALTHCARE LLC
  Company Number: US-BAYER-2024A160362

PATIENT
  Age: 75 Year
  Sex: Female

DRUGS (3)
  1. MIRALAX [Suspect]
     Active Substance: POLYETHYLENE GLYCOL 3350
     Indication: Colonoscopy
     Dosage: I USED IT DAILY EVERY MORNING. SOMETIMES I DO IT LIKE CAP FULL I USED IT DAILY EVERY MORNING. SOMETI
     Route: 048
  2. MIRALAX [Suspect]
     Active Substance: POLYETHYLENE GLYCOL 3350
     Indication: Colonoscopy
     Dosage: BUT I AM DOING IT HALF-FULL. DOSE
     Route: 048
     Dates: end: 20241108
  3. BENEFIBER [Concomitant]
     Active Substance: STARCH, WHEAT
     Dosage: UNK

REACTIONS (5)
  - Product use issue [Not Recovered/Not Resolved]
  - Product use in unapproved indication [Unknown]
  - Incorrect dose administered [Unknown]
  - Abdominal pain upper [Not Recovered/Not Resolved]
  - Flatulence [Not Recovered/Not Resolved]

NARRATIVE: CASE EVENT DATE: 20240715
